FAERS Safety Report 19868089 (Version 1)
Quarter: 2021Q3

REPORT INFORMATION
  Report Type: Spontaneous
  Country: AT (occurrence: AT)
  Receive Date: 20210922
  Receipt Date: 20210922
  Transmission Date: 20211014
  Serious: Yes (Other)
  Sender: FDA-Public Use
  Company Number: AT-ACCORD-239091

PATIENT
  Age: 11 Year
  Sex: Male
  Weight: 41.1 kg

DRUGS (1)
  1. METHOTREXATE. [Suspect]
     Active Substance: METHOTREXATE
     Indication: CONGENITAL RETINOBLASTOMA
     Dosage: 12 G/M2, STARTED AFTER INTERRUPTION TO COMPLETE THE FIRST COURSE.

REACTIONS (8)
  - Drug level increased [Recovered/Resolved]
  - Infusion related reaction [Recovering/Resolving]
  - Leukocytosis [Recovered/Resolved]
  - Rash [Recovering/Resolving]
  - Coagulopathy [Recovered/Resolved]
  - Hepatic failure [Recovered/Resolved]
  - Acute kidney injury [Recovered/Resolved]
  - Off label use [Unknown]
